FAERS Safety Report 16860517 (Version 9)
Quarter: 2022Q2

REPORT INFORMATION
  Report Type: Spontaneous
  Country: US (occurrence: US)
  Receive Date: 20190927
  Receipt Date: 20220519
  Transmission Date: 20220721
  Serious: No
  Sender: FDA-Public Use
  Company Number: US-PFIZER INC-2019415404

PATIENT
  Age: 75 Year
  Sex: Male
  Weight: 131.51 kg

DRUGS (4)
  1. TIKOSYN [Suspect]
     Active Substance: DOFETILIDE
     Indication: Atrial fibrillation
     Dosage: UNK
     Dates: start: 201803
  2. TIKOSYN [Suspect]
     Active Substance: DOFETILIDE
     Indication: Cardiac disorder
     Dosage: 500 UG, TWICE A DAY
     Route: 048
     Dates: start: 201903
  3. TIKOSYN [Suspect]
     Active Substance: DOFETILIDE
     Dosage: UNK
  4. ENTRESTO [Concomitant]
     Active Substance: SACUBITRIL\VALSARTAN
     Dosage: UNK
     Dates: start: 201803

REACTIONS (6)
  - Product dispensing error [Unknown]
  - Product prescribing error [Unknown]
  - Memory impairment [Unknown]
  - Frustration tolerance decreased [Unknown]
  - Panic reaction [Unknown]
  - Movement disorder [Unknown]

NARRATIVE: CASE EVENT DATE: 20180301
